FAERS Safety Report 20013065 (Version 1)
Quarter: 2021Q4

REPORT INFORMATION
  Report Type: Spontaneous
  Country: US (occurrence: US)
  Receive Date: 20211029
  Receipt Date: 20211029
  Transmission Date: 20220303
  Serious: Yes (Other)
  Sender: FDA-Public Use
  Company Number: US-SA-SAC20211027000502

PATIENT
  Age: 48 Year

DRUGS (17)
  1. FABRAZYME [Suspect]
     Active Substance: AGALSIDASE BETA
     Indication: Fabry^s disease
     Dosage: 70 MG VIAL, QOW
     Route: 042
     Dates: start: 20120905
  2. FABRAZYME [Suspect]
     Active Substance: AGALSIDASE BETA
     Indication: Lipidosis
  3. CEPHALEXIN [Concomitant]
     Active Substance: CEPHALEXIN
  4. DIPHENHYDRAMINE [Concomitant]
     Active Substance: DIPHENHYDRAMINE
  5. IBUPROFEN [Concomitant]
     Active Substance: IBUPROFEN
  6. STERILE WATER [Concomitant]
     Active Substance: WATER
  7. EPINEPHRINE [Concomitant]
     Active Substance: EPINEPHRINE
  8. OMEPRAZOLE [Concomitant]
     Active Substance: OMEPRAZOLE
  9. LIDOCAINE [Concomitant]
     Active Substance: LIDOCAINE
  10. CHANTIX [Concomitant]
     Active Substance: VARENICLINE TARTRATE
  11. BIOTIN [Concomitant]
     Active Substance: BIOTIN
  12. CALCIUM [Concomitant]
     Active Substance: CALCIUM
  13. VITAMIN D3 [Concomitant]
     Active Substance: CHOLECALCIFEROL
  14. SODIUM CHLORIDE [Concomitant]
     Active Substance: SODIUM CHLORIDE
  15. ALBUTEROL [Concomitant]
     Active Substance: ALBUTEROL
  16. DIETARY SUPPLEMENT\RESVERATROL [Concomitant]
     Active Substance: DIETARY SUPPLEMENT\RESVERATROL
  17. LMX4 [Concomitant]
     Active Substance: LIDOCAINE

REACTIONS (4)
  - Loss of consciousness [Unknown]
  - Headache [Unknown]
  - Dizziness [Unknown]
  - Heart rate increased [Unknown]

NARRATIVE: CASE EVENT DATE: 20210101
